FAERS Safety Report 5535841-0 (Version None)
Quarter: 2007Q4

REPORT INFORMATION
  Report Type: 
  Country: None (occurrence: None)
  Receive Date: 20071206
  Receipt Date: 20071126
  Transmission Date: 20080405
  Serious: Yes (Other)
  Sender: FDA-Public Use
  Company Number: FR-JNJFOC-20071200882

PATIENT
  Sex: Male

DRUGS (10)
  1. INFLIXIMAB [Suspect]
     Indication: DRUG EXPOSURE DURING PREGNANCY
     Dosage: MOTHER RECEIVED 5 DOSES OF INFLIXIMAB 300 MG BETWEEN 09-SEP-04 AND 25-JUN-05.
     Route: 015
  2. SPASFON LYOC [Concomitant]
     Indication: DRUG EXPOSURE DURING PREGNANCY
     Route: 015
  3. METHOTREXATE [Concomitant]
     Indication: DRUG EXPOSURE DURING PREGNANCY
     Route: 015
  4. HUMIRA [Concomitant]
     Indication: DRUG EXPOSURE DURING PREGNANCY
     Route: 015
  5. PREDNISONE TAB [Concomitant]
     Route: 015
  6. PREDNISONE TAB [Concomitant]
     Route: 015
  7. PREDNISONE TAB [Concomitant]
     Indication: DRUG EXPOSURE DURING PREGNANCY
     Route: 015
  8. TRIMEBUTINE [Concomitant]
     Indication: DRUG EXPOSURE DURING PREGNANCY
     Route: 015
  9. BETAMETHASONE [Concomitant]
     Indication: PROPHYLAXIS
     Route: 015
  10. ANTIBIOTICS [Concomitant]
     Indication: DRUG EXPOSURE DURING PREGNANCY
     Route: 015

REACTIONS (1)
  - PREMATURE BABY [None]
